FAERS Safety Report 5699382-2 (Version None)
Quarter: 2008Q2

REPORT INFORMATION
  Report Type: 
  Country: None (occurrence: None)
  Receive Date: 20080407
  Receipt Date: 20080320
  Transmission Date: 20081010
  Serious: Yes (Other)
  Sender: FDA-Public Use
  Company Number: 1-15932441

PATIENT
  Age: 70 Year
  Sex: Female

DRUGS (2)
  1. SOLODYN [Suspect]
     Indication: ROSACEA
     Dosage: 1 TABLET DAILY ORALLY
     Route: 048
     Dates: start: 20071015, end: 20071029
  2. FOSAMAX [Concomitant]

REACTIONS (6)
  - CLAVICLE FRACTURE [None]
  - DRUG INEFFECTIVE [None]
  - FALL [None]
  - INJURY [None]
  - SYNCOPE [None]
  - VERTIGO [None]
